FAERS Safety Report 8136593-0 (Version None)
Quarter: 2012Q1

REPORT INFORMATION
  Report Type: 
  Country: None (occurrence: None)
  Receive Date: 20120214
  Receipt Date: 20120203
  Transmission Date: 20120608
  Serious: Yes (Death, Hospitalization, Disabling, Other)
  Sender: FDA-Public Use
  Company Number: PT-ROCHE-646314

PATIENT
  Age: 71 Year
  Sex: Male

DRUGS (6)
  1. AVASTIN [Suspect]
     Indication: DIABETIC RETINOPATHY
     Dosage: 25MG/ML CONCENTRATE FOR SOLUTION FOR INFUSION
     Route: 031
     Dates: start: 20090717, end: 20090717
  2. LEVOFLOXACIN HEMIHYDRATE [Concomitant]
     Indication: PROPHYLAXIS
     Dosage: DOSE: 4 GTT, FREQUENCY: DAILY.
     Route: 047
  3. OXYBUPROCAINE HCL [Concomitant]
     Indication: ANAESTHESIA
     Dosage: DOSE: 1 GTT, FREQUENCY: DAILY.
     Route: 047
     Dates: start: 20090717, end: 20090717
  4. NORFLOXACIN [Concomitant]
     Indication: PROPHYLAXIS
     Dosage: DOSE: 1 UNITARY DOSE, FREQUENCY: DAILY.
     Route: 047
     Dates: start: 20090717, end: 20090717
  5. GLYBURIDE [Concomitant]
     Indication: TYPE 2 DIABETES MELLITUS
     Route: 048
  6. POVIDONE IODINE [Concomitant]
     Indication: INFECTION PROPHYLAXIS
     Dosage: DOSE: 1 UNITARY DOSE, FREQUENCY: DAILY.
     Route: 061
     Dates: start: 20090717, end: 20090717

REACTIONS (3)
  - ENDOPHTHALMITIS [None]
  - HEMIANOPIA [None]
  - DEATH [None]
